FAERS Safety Report 4423746-8 (Version None)
Quarter: 2004Q3

REPORT INFORMATION
  Report Type: 
  Country: None (occurrence: None)
  Receive Date: 20040806
  Receipt Date: 20040726
  Transmission Date: 20050211
  Serious: Yes (Death, Life-Threatening)
  Sender: FDA-Public Use
  Company Number: JP-JNJFOC-20031002341

PATIENT
  Age: 79 Year
  Sex: Male

DRUGS (17)
  1. FENTANYL [Suspect]
     Indication: CANCER PAIN
     Dosage: SEE IMAGE
     Route: 062
     Dates: start: 20030917, end: 20030925
  2. FENTANYL [Suspect]
     Indication: CANCER PAIN
     Dosage: SEE IMAGE
     Route: 062
     Dates: start: 20030925, end: 20031002
  3. SENNOSIDE (ALL OTHER THERAPEUTIC PRODUCTS) [Concomitant]
  4. MAGNESIUM OXIDE (MAGNESIUM OXIDE) [Concomitant]
  5. OXYCODONE HCL [Concomitant]
  6. CODEINE PHOSPHATE (CODEINE PHOSPHATE) [Concomitant]
  7. MORPHINE [Concomitant]
  8. AMINOPHYLLIN [Concomitant]
  9. OMEPRAZOLE [Concomitant]
  10. FLUNITRAZEPAM (FLUNITRAZEPAM) [Concomitant]
  11. THEOPHYLLINE [Concomitant]
  12. AMLODIPINE BESYLATE [Concomitant]
  13. TEPRENONE (TEPRENONE) [Concomitant]
  14. MAPROTILINE HYDROCHLORIDE [Concomitant]
  15. MILNACIPRAN HYDROCHLORIDE (MILNACIPRAN HYDROCHLORIDE) [Concomitant]
  16. FLUNITRAZEPAM (FLUNITRAZEPAM) [Concomitant]
  17. ZOPICLONE (ZOPICLONE) [Concomitant]

REACTIONS (8)
  - BLOOD ALKALINE PHOSPHATASE INCREASED [None]
  - BLOOD UREA INCREASED [None]
  - C-REACTIVE PROTEIN INCREASED [None]
  - DYSPNOEA [None]
  - LEUKOCYTOSIS [None]
  - PNEUMONIA ASPIRATION [None]
  - PYREXIA [None]
  - RESPIRATORY DISTRESS [None]
